FAERS Safety Report 16738971 (Version 1)
Quarter: 2019Q3

REPORT INFORMATION
  Report Type: Spontaneous
  Country: ES (occurrence: ES)
  Receive Date: 20190826
  Receipt Date: 20190826
  Transmission Date: 20191005
  Serious: Yes (Hospitalization)
  Sender: FDA-Public Use
  Company Number: ES-SCIEGEN PHARMACEUTICALS INC-2019SCILIT00245

PATIENT
  Age: 71 Year
  Sex: Male

DRUGS (7)
  1. OMEPRAZOLE. [Suspect]
     Active Substance: OMEPRAZOLE
  2. IRBESARTAN TABLETS [Suspect]
     Active Substance: IRBESARTAN
  3. IRON [Concomitant]
     Active Substance: IRON
  4. FUROSEMIDE. [Suspect]
     Active Substance: FUROSEMIDE
  5. DIGOXIN. [Concomitant]
     Active Substance: DIGOXIN
  6. TRIPTORELIN [Concomitant]
     Active Substance: TRIPTORELIN
  7. ACENOCOUMAROL [Concomitant]
     Active Substance: ACENOCOUMAROL

REACTIONS (2)
  - Glomerulonephropathy [Unknown]
  - Nephrocalcinosis [Unknown]
